FAERS Safety Report 5944248-3 (Version None)
Quarter: 2008Q4

REPORT INFORMATION
  Report Type: 
  Country: None (occurrence: None)
  Receive Date: 20081104
  Receipt Date: 20081023
  Transmission Date: 20090506
  Serious: Yes (Hospitalization)
  Sender: FDA-Public Use
  Company Number: 2008-03274

PATIENT
  Age: 64 Year
  Sex: Male
  Weight: 77.1 kg

DRUGS (8)
  1. VELCADE [Suspect]
     Indication: MULTIPLE MYELOMA
     Dosage: 1 MG/M2,  INTRAVENOUS
     Route: 042
     Dates: start: 20020506, end: 20020531
  2. THALIDOMIDE [Suspect]
     Indication: MULTIPLE MYELOMA
     Dosage: 50 MG; 100 MG
  3. DILAUDID [Concomitant]
  4. ACYCLOVIR [Concomitant]
  5. POTASSIUM (POTASSIUM) [Concomitant]
  6. PREVAICD (LANSOPROAZOLE) [Concomitant]
  7. COUMADIN [Concomitant]
  8. MULTIVITAMIN [Concomitant]

REACTIONS (6)
  - BRONCHOPULMONARY ASPERGILLOSIS [None]
  - CONDITION AGGRAVATED [None]
  - LACTOBACILLUS INFECTION [None]
  - PERICARDIAL EFFUSION [None]
  - PNEUMONIA [None]
  - STAPHYLOCOCCAL INFECTION [None]
